FAERS Safety Report 8807460 (Version 2)
Quarter: 2012Q4

REPORT INFORMATION
  Report Type: 
  Country: FR (occurrence: FR)
  Receive Date: 20120925
  Receipt Date: 20121009
  Transmission Date: 20130627
  Serious: Yes (Hospitalization)
  Sender: FDA-Public Use
  Company Number: FR-ROCHE-1135971

PATIENT
  Age: 58 Year
  Sex: Female

DRUGS (3)
  1. MABTHERA [Suspect]
     Indication: RHEUMATOID ARTHRITIS
     Dosage: frequency twice
     Route: 042
     Dates: start: 20101123
  2. METHOTREXATE [Concomitant]
     Indication: RHEUMATOID ARTHRITIS
     Route: 065
     Dates: start: 20090514, end: 201112
  3. CORTANCYL [Concomitant]
     Indication: RHEUMATOID ARTHRITIS
     Route: 065
     Dates: start: 20090514, end: 201112

REACTIONS (1)
  - Lung neoplasm malignant [Not Recovered/Not Resolved]
